FAERS Safety Report 9500956 (Version 1)
Quarter: 2013Q3

REPORT INFORMATION
  Report Type: Spontaneous
  Country: GB (occurrence: GB)
  Receive Date: 20130905
  Receipt Date: 20130905
  Transmission Date: 20140515
  Serious: Yes (Other)
  Sender: FDA-Public Use
  Company Number: PHHY2013GB094067

PATIENT
  Age: 36 Year
  Sex: Female
  Weight: 56.2 kg

DRUGS (3)
  1. MIRTAZAPINE [Suspect]
     Dosage: 15 MG, UNK
     Route: 048
     Dates: start: 20130612, end: 20130812
  2. VENTOLIN                           /00942701/ [Concomitant]
     Dates: start: 20130423, end: 20130622
  3. FOSTAIR [Concomitant]
     Dates: start: 20130423, end: 20130807

REACTIONS (1)
  - Dyspnoea [Recovered/Resolved]
